FAERS Safety Report 4303265-X (Version None)
Quarter: 2004Q1

REPORT INFORMATION
  Report Type: 
  Country: None (occurrence: None)
  Receive Date: 20040223
  Receipt Date: 20040211
  Transmission Date: 20041129
  Serious: Yes (Hospitalization)
  Sender: FDA-Public Use
  Company Number: 2004198567FR

PATIENT
  Age: 61 Year
  Sex: Male

DRUGS (3)
  1. DELTASONE [Suspect]
     Dosage: SEE IMAGE
     Dates: start: 19971101
  2. AZATHIOPRINE [Concomitant]
  3. CYCLOSPORINE [Concomitant]

REACTIONS (27)
  - AGITATION [None]
  - AMYOTROPHY [None]
  - ANXIETY [None]
  - ASTHENIA [None]
  - BRAIN ABSCESS [None]
  - BRAIN OEDEMA [None]
  - CD4 LYMPHOCYTES DECREASED [None]
  - CONGESTIVE CARDIOMYOPATHY [None]
  - CREPITATIONS [None]
  - DYSPNOEA [None]
  - DYSPNOEA AT REST [None]
  - HEADACHE [None]
  - HEART TRANSPLANT [None]
  - INFLAMMATION [None]
  - INTRACRANIAL PRESSURE INCREASED [None]
  - LYMPHOCYTE PERCENTAGE DECREASED [None]
  - MEDICATION ERROR [None]
  - MEMORY IMPAIRMENT [None]
  - MENTAL DISORDER [None]
  - MORAXELLA INFECTION [None]
  - NEUTROPHIL PERCENTAGE INCREASED [None]
  - NOCARDIOSIS [None]
  - OVERDOSE [None]
  - RALES [None]
  - RED BLOOD CELL SEDIMENTATION RATE INCREASED [None]
  - SPINAL COMPRESSION FRACTURE [None]
  - WHITE BLOOD CELL COUNT DECREASED [None]
